FAERS Safety Report 11536873 (Version 6)
Quarter: 2016Q1

REPORT INFORMATION
  Report Type: Spontaneous
  Country: US (occurrence: US)
  Receive Date: 20150922
  Receipt Date: 20160120
  Transmission Date: 20160525
  Serious: No
  Sender: FDA-Public Use
  Company Number: US-ACTELION PHARMACEUTICALS US, INC.-A-NJ2015-124289

PATIENT
  Age: 71 Year
  Sex: Female

DRUGS (4)
  1. ADCIRCA [Concomitant]
     Active Substance: TADALAFIL
  2. OPSUMIT [Suspect]
     Active Substance: MACITENTAN
     Indication: PULMONARY ARTERIAL HYPERTENSION
     Dosage: 10 MG, QD
     Route: 048
     Dates: start: 20150901
  3. OXYGEN. [Concomitant]
     Active Substance: OXYGEN
  4. COUMADIN [Concomitant]
     Active Substance: WARFARIN SODIUM

REACTIONS (23)
  - Pyrexia [Unknown]
  - Nasopharyngitis [Unknown]
  - Pollakiuria [Unknown]
  - Micturition urgency [Unknown]
  - Constipation [Unknown]
  - Muscle spasms [Unknown]
  - Dizziness [Unknown]
  - Pelvic pain [Unknown]
  - Abdominal pain [Unknown]
  - Weight increased [Unknown]
  - Abdominal distension [Unknown]
  - Dyspnoea [Unknown]
  - Respiratory tract congestion [Unknown]
  - No therapeutic response [Unknown]
  - Pain [Unknown]
  - Cough [Unknown]
  - Chills [Unknown]
  - Peripheral swelling [Unknown]
  - Pruritus [Unknown]
  - Condition aggravated [Unknown]
  - Malaise [Unknown]
  - Fungal infection [Unknown]
  - Abdominal discomfort [Unknown]

NARRATIVE: CASE EVENT DATE: 20150919
